FAERS Safety Report 15547719 (Version 1)
Quarter: 2018Q4

REPORT INFORMATION
  Report Type: Spontaneous
  Country: JP (occurrence: JP)
  Receive Date: 20181024
  Receipt Date: 20181024
  Transmission Date: 20190205
  Serious: Yes (Other)
  Sender: FDA-Public Use
  Company Number: JP-GILEAD-2018-0370306

PATIENT
  Age: 83 Year
  Sex: Male

DRUGS (5)
  1. WHITE PETROLATUM [Concomitant]
     Active Substance: PETROLATUM
     Indication: PRURITUS
     Dosage: UNK
     Route: 062
  2. GLYDIL                             /00337102/ [Concomitant]
     Indication: PRURITUS
     Dosage: UNK
     Route: 062
  3. ONEALFA [Concomitant]
     Active Substance: ALFACALCIDOL
     Indication: AUTOIMMUNE THYROIDITIS
     Dosage: UNK
     Route: 048
  4. HARVONI [Suspect]
     Active Substance: LEDIPASVIR\SOFOSBUVIR
     Indication: CHRONIC HEPATITIS C
     Dosage: UNK
     Route: 048
     Dates: start: 20180907, end: 20181016
  5. PREDONINE [Concomitant]
     Active Substance: PREDNISOLONE
     Indication: AUTOIMMUNE THYROIDITIS
     Dosage: UNK
     Route: 048

REACTIONS (1)
  - Loss of consciousness [Recovered/Resolved]

NARRATIVE: CASE EVENT DATE: 20181016
